FAERS Safety Report 4266818-3 (Version None)
Quarter: 2004Q1

REPORT INFORMATION
  Report Type: 
  Country: None (occurrence: None)
  Receive Date: 20040108
  Receipt Date: 20030503
  Transmission Date: 20041129
  Serious: No
  Sender: FDA-Public Use
  Company Number: US-GLAXOSMITHKLINE-A0413979A

PATIENT
  Sex: Female

DRUGS (1)
  1. LAMIVUDINE [Suspect]
     Indication: HEPATITIS B VIRUS
     Route: 048

REACTIONS (2)
  - MYALGIA [None]
  - RASH [None]
